FAERS Safety Report 9797718 (Version 1)
Quarter: 2014Q1

REPORT INFORMATION
  Report Type: Spontaneous
  Country: US (occurrence: US)
  Receive Date: 20140106
  Receipt Date: 20140106
  Transmission Date: 20141002
  Serious: No
  Sender: FDA-Public Use
  Company Number: US-PFIZER INC-2014002287

PATIENT
  Age: 9 Year
  Sex: Female

DRUGS (5)
  1. DILANTIN-125 [Suspect]
     Dosage: UNK
  2. VIMPAT [Concomitant]
     Dosage: TWICE A DAY
  3. KEPPRA [Concomitant]
     Dosage: TWICE A DAY
  4. DIASTAT [Concomitant]
     Indication: CONVULSION
     Dosage: UNK
  5. CLONAZEPAM [Concomitant]
     Indication: CONVULSION
     Dosage: UNK

REACTIONS (1)
  - Drug hypersensitivity [Unknown]
